FAERS Safety Report 19040140 (Version 1)
Quarter: 2021Q1

REPORT INFORMATION
  Report Type: Spontaneous
  Country: US (occurrence: US)
  Receive Date: 20210322
  Receipt Date: 20210322
  Transmission Date: 20210420
  Serious: No
  Sender: FDA-Public Use
  Company Number: US-BIOHAVEN PHARMACEUTICALS-2020BHV00933

PATIENT
  Age: 52 Year
  Sex: Female
  Weight: 99.77 kg

DRUGS (16)
  1. NADOLOL. [Concomitant]
     Active Substance: NADOLOL
     Dosage: 30 MG, 1X/DAY
  2. VITAMIN B2 [Concomitant]
     Active Substance: RIBOFLAVIN
  3. DULOXETINE. [Concomitant]
     Active Substance: DULOXETINE
  4. E FEM [Concomitant]
  5. VITMIN B6 [Concomitant]
  6. VITAMIN B12 [Concomitant]
     Active Substance: CYANOCOBALAMIN
  7. NURTEC ODT [Suspect]
     Active Substance: RIMEGEPANT SULFATE
     Indication: HEADACHE
     Dosage: 75 MG
     Route: 048
     Dates: start: 202005
  8. BOSWELLIA [Concomitant]
     Active Substance: DIETARY SUPPLEMENT\HERBALS
  9. ALBUTEROL. [Concomitant]
     Active Substance: ALBUTEROL
  10. TRAZODONE [Concomitant]
     Active Substance: TRAZODONE HYDROCHLORIDE
  11. COMPAZINE [Concomitant]
     Active Substance: PROCHLORPERAZINE MALEATE
  12. MAGNESIUM [Concomitant]
     Active Substance: MAGNESIUM
  13. KRILL OIL [Concomitant]
     Active Substance: DIETARY SUPPLEMENT\KRILL OIL
  14. ONDANSETRON [Concomitant]
     Active Substance: ONDANSETRON
  15. CALCIUM/VITAMIN D [Concomitant]
     Active Substance: CALCIUM\VITAMIN D
  16. NAC (N?ACETYLCYSTEINE) [Concomitant]

REACTIONS (3)
  - Dyspnoea exertional [Recovering/Resolving]
  - Bronchial hyperreactivity [Recovering/Resolving]
  - Wheezing [Recovering/Resolving]

NARRATIVE: CASE EVENT DATE: 202010
